FAERS Safety Report 18079381 (Version 1)
Quarter: 2020Q3

REPORT INFORMATION
  Report Type: Spontaneous
  Country: US (occurrence: US)
  Receive Date: 20200727
  Receipt Date: 20200727
  Transmission Date: 20201103
  Serious: No
  Sender: FDA-Public Use
  Company Number: None

PATIENT
  Sex: Male

DRUGS (2)
  1. CARBAMAZEPINE. [Suspect]
     Active Substance: CARBAMAZEPINE
     Indication: TRIGEMINAL NEURALGIA
     Route: 048
  2. HALOPERIDOL. [Suspect]
     Active Substance: HALOPERIDOL
     Route: 048
     Dates: start: 20191223, end: 20191227

REACTIONS (10)
  - Epistaxis [None]
  - Urinary incontinence [None]
  - Hyponatraemia [None]
  - Confusional state [None]
  - Mental status changes [None]
  - Slow response to stimuli [None]
  - Dystonia [None]
  - Hypokinesia [None]
  - Muscle rigidity [None]
  - Blood creatine phosphokinase increased [None]

NARRATIVE: CASE EVENT DATE: 20191223
